FAERS Safety Report 4796946-5 (Version None)
Quarter: 2005Q4

REPORT INFORMATION
  Report Type: 
  Country: None (occurrence: None)
  Receive Date: 20051013
  Receipt Date: 20051003
  Transmission Date: 20060501
  Serious: Yes (Hospitalization)
  Sender: FDA-Public Use
  Company Number: IT-AMGEN-UK152740

PATIENT
  Age: 74 Year
  Sex: Female

DRUGS (4)
  1. DARBEPOETIN ALFA [Suspect]
     Indication: ANAEMIA OF MALIGNANT DISEASE
     Route: 065
     Dates: start: 20050927, end: 20050927
  2. CYCLOPHOSPHAMIDE [Concomitant]
     Route: 065
     Dates: start: 20050920
  3. METHOTREXATE [Concomitant]
     Route: 065
     Dates: start: 20050920
  4. FLUOROURACIL [Concomitant]
     Route: 065
     Dates: start: 20050920

REACTIONS (1)
  - PANCYTOPENIA [None]
